FAERS Safety Report 4903080-X (Version None)
Quarter: 2006Q1

REPORT INFORMATION
  Report Type: 
  Country: None (occurrence: None)
  Receive Date: 20060207
  Receipt Date: 20050621
  Transmission Date: 20060701
  Serious: Yes (Hospitalization, Disabling)
  Sender: FDA-Public Use
  Company Number: US-MERCK-0506USA03197

PATIENT
  Age: 59 Year
  Sex: Male
  Weight: 91 kg

DRUGS (8)
  1. IRON (UNSPECIFIED) [Concomitant]
     Route: 048
  2. ESTER-C [Concomitant]
     Route: 048
  3. AMBROTOSE AO [Concomitant]
     Route: 048
  4. VIOXX [Suspect]
     Indication: OSTEOARTHRITIS
     Route: 048
     Dates: start: 20031101, end: 20040701
  5. VIOXX [Suspect]
     Indication: ARTHRALGIA
     Route: 048
     Dates: start: 20031101, end: 20040701
  6. TOPROL-XL [Concomitant]
     Route: 048
  7. CYANOCOBALAMIN [Concomitant]
     Route: 048
  8. COENZYME Q10 [Concomitant]
     Route: 048

REACTIONS (6)
  - ACUTE MYOCARDIAL INFARCTION [None]
  - CARDIAC FAILURE CONGESTIVE [None]
  - CORONARY ARTERY DISEASE [None]
  - PROSTATE CANCER [None]
  - PULMONARY EMBOLISM [None]
  - SEBORRHOEIC KERATOSIS [None]
